FAERS Safety Report 19706169 (Version 1)
Quarter: 2021Q3

REPORT INFORMATION
  Report Type: Spontaneous
  Country: DE (occurrence: DE)
  Receive Date: 20210817
  Receipt Date: 20210817
  Transmission Date: 20211014
  Serious: Yes (Hospitalization, Other)
  Sender: FDA-Public Use
  Company Number: DE-TEVA-2021-DE-1941205

PATIENT
  Age: 59 Year
  Sex: Male
  Weight: 57 kg

DRUGS (7)
  1. EZETIMIB/SIMVASTATIN [Concomitant]
     Active Substance: EZETIMIBE\SIMVASTATIN
     Dosage: 1 DOSAGE FORMS DAILY; 10|80 MG, 0?0?1?0
  2. CYANOCOBALAMIN (VITAMIN B12) [Concomitant]
     Dosage: SCHEME
  3. ACETYLSALICYLSAURE [Suspect]
     Active Substance: ASPIRIN
     Dosage: 100 MILLIGRAM DAILY; 100 MG, 1?0?0?0
     Route: 065
  4. FOLSAURE [Concomitant]
     Active Substance: FOLIC ACID
     Dosage: 5 MG, SCHEME
  5. CLOPIDOGREL [Suspect]
     Active Substance: CLOPIDOGREL BISULFATE
     Dosage: 75 MG, PAUSE
  6. APIXABAN [Suspect]
     Active Substance: APIXABAN
     Dosage: 5 MILLIGRAM DAILY; 1?0?0?0
  7. NATRIUMCARBONAT [Concomitant]
     Dosage: 2 DOSAGE FORMS DAILY; 1?0?1?0

REACTIONS (8)
  - General physical health deterioration [Unknown]
  - Anaemia [Unknown]
  - Haematochezia [Unknown]
  - Dyspnoea [Unknown]
  - Lower gastrointestinal haemorrhage [Unknown]
  - Pallor [Unknown]
  - Electrocardiogram abnormal [Unknown]
  - Abdominal pain [Unknown]
